FAERS Safety Report 5470612-5 (Version None)
Quarter: 2007Q3

REPORT INFORMATION
  Report Type: 
  Country: None (occurrence: None)
  Receive Date: 20070928
  Receipt Date: 20070921
  Transmission Date: 20080115
  Serious: Yes (Other)
  Sender: FDA-Public Use
  Company Number: US-JNJFOC-20070606754

PATIENT
  Sex: Female
  Weight: 84.82 kg

DRUGS (7)
  1. INFLIXIMAB, RECOMBINANT [Suspect]
     Dosage: DOSE: 5 VIALS
     Route: 042
  2. INFLIXIMAB, RECOMBINANT [Suspect]
     Indication: RHEUMATOID ARTHRITIS
     Dosage: DOSE: 4 VIALS; 4 INFUSIONS ON UNSPECIFIED DATES.
     Route: 042
  3. MTX [Concomitant]
     Indication: RHEUMATOID ARTHRITIS
  4. TRAMADOL HCL [Concomitant]
     Indication: RHEUMATOID ARTHRITIS
  5. NAPROXIN [Concomitant]
     Indication: RHEUMATOID ARTHRITIS
  6. FOLIC ACID [Concomitant]
     Indication: RHEUMATOID ARTHRITIS
  7. VICODIN [Concomitant]
     Indication: RHEUMATOID ARTHRITIS

REACTIONS (6)
  - AREFLEXIA [None]
  - FALL [None]
  - HEADACHE [None]
  - HYPERTENSION [None]
  - HYPOAESTHESIA [None]
  - INFUSION SITE REACTION [None]
